FAERS Safety Report 8497167 (Version 3)
Quarter: 2013Q3

REPORT INFORMATION
  Report Type: Report from Study
  Country: CA (occurrence: CA)
  Receive Date: 20120406
  Receipt Date: 20130701
  Transmission Date: 20140515
  Serious: Yes (Other)
  Sender: FDA-Public Use
  Company Number: PHHY2012CA029133

PATIENT
  Sex: Female

DRUGS (8)
  1. ACLASTA [Suspect]
     Indication: OSTEOPOROSIS
     Dosage: UNK UKN, ONCE A YEAR
     Route: 042
     Dates: start: 20080604
  2. ACLASTA [Suspect]
     Dosage: UNK UKN, ONCE A YEAR
     Route: 042
     Dates: start: 20090617
  3. ACLASTA [Suspect]
     Dosage: UNK UKN, ONCE A YEAR
     Route: 042
     Dates: start: 20100616
  4. ACLASTA [Suspect]
     Dosage: UNK UKN, ONCE A YEAR
     Route: 042
     Dates: start: 20110615
  5. ACLASTA [Suspect]
     Dosage: UNK UKN, ONCE A YEAR
     Route: 042
     Dates: start: 20120612
  6. APO-LEVOCARB [Concomitant]
     Dosage: UNK UKN, TID
  7. ATORVASTATIN [Concomitant]
     Dosage: UNK UKN, QD
  8. CODEINE [Concomitant]
     Dosage: UNK UKN, BID

REACTIONS (3)
  - Glaucoma [Unknown]
  - Coronary artery occlusion [Unknown]
  - Parkinson^s disease [Unknown]
